FAERS Safety Report 8950013 (Version 1)
Quarter: 2012Q4

REPORT INFORMATION
  Report Type: 
  Country: US (occurrence: US)
  Receive Date: 20121205
  Receipt Date: 20121205
  Transmission Date: 20130627
  Serious: No
  Sender: FDA-Public Use
  Company Number: US-ASTELLAS-2012US007333

PATIENT

DRUGS (2)
  1. TARCEVA [Suspect]
     Indication: PRODUCT USED FOR UNKNOWN INDICATION
     Dosage: 150 mg, Unknown/D
     Route: 048
  2. TARCEVA [Suspect]
     Dosage: 75 mg, UID/QD
     Route: 048

REACTIONS (1)
  - Adverse event [Unknown]
